FAERS Safety Report 6982942-6 (Version None)
Quarter: 2010Q3

REPORT INFORMATION
  Report Type: 
  Country: None (occurrence: None)
  Receive Date: 20100914
  Receipt Date: 20100428
  Transmission Date: 20110219
  Serious: No
  Sender: FDA-Public Use
  Company Number: US-PFIZER INC-2010054386

PATIENT
  Sex: Female
  Weight: 79.365 kg

DRUGS (3)
  1. LYRICA [Suspect]
     Indication: FIBROMYALGIA
     Dosage: 75 MG, 1X/DAY
     Route: 048
     Dates: start: 20100401
  2. LYRICA [Suspect]
     Dosage: 75 MG, 2 CAPSULES ONCE DAILY
     Route: 048
     Dates: start: 20100401
  3. NAPROXEN [Concomitant]
     Dosage: UNK

REACTIONS (3)
  - DRUG INEFFECTIVE [None]
  - DYSARTHRIA [None]
  - HEADACHE [None]
